FAERS Safety Report 9160738 (Version 1)
Quarter: 2013Q1

REPORT INFORMATION
  Report Type: Spontaneous
  Country: CA (occurrence: CA)
  Receive Date: 20130313
  Receipt Date: 20130313
  Transmission Date: 20140127
  Serious: Yes (Other)
  Sender: FDA-Public Use
  Company Number: CA-ASTRAZENECA-2013SE14973

PATIENT
  Age: 59 Year
  Sex: Female

DRUGS (3)
  1. SYMBICORT TURBUHALER [Suspect]
     Indication: ASTHMA
     Dosage: 200 MCG, 4 INHALATIONS,DAILY
     Route: 055
  2. VENTOLIN [Concomitant]
     Indication: ASTHMA
  3. QVAIR [Concomitant]
     Indication: ASTHMA

REACTIONS (2)
  - Fungal oesophagitis [Recovering/Resolving]
  - Gastritis fungal [Recovering/Resolving]
